FAERS Safety Report 15182788 (Version 1)
Quarter: 2018Q3

REPORT INFORMATION
  Report Type: Spontaneous
  Country: JP (occurrence: JP)
  Receive Date: 20180723
  Receipt Date: 20180723
  Transmission Date: 20181010
  Serious: Yes (Life-Threatening, Hospitalization)
  Sender: FDA-Public Use
  Company Number: JP-JNJFOC-20180726193

PATIENT
  Age: 80 Year
  Sex: Female

DRUGS (8)
  1. TRAMAL [Suspect]
     Active Substance: TRAMADOL
     Indication: NEURALGIA
     Route: 048
  2. TRAMAL [Suspect]
     Active Substance: TRAMADOL
     Indication: HYPOAESTHESIA
     Route: 048
  3. LYRICA [Suspect]
     Active Substance: PREGABALIN
     Indication: NEURALGIA
     Route: 048
  4. TRAMAL [Suspect]
     Active Substance: TRAMADOL
     Indication: HYPOAESTHESIA
     Route: 048
  5. SENNOSIDE [Concomitant]
     Active Substance: SENNOSIDES
     Indication: CONSTIPATION
     Route: 065
  6. MAGNESIUM OXIDE. [Concomitant]
     Active Substance: MAGNESIUM OXIDE
     Indication: CONSTIPATION
     Route: 065
  7. TRAMAL [Suspect]
     Active Substance: TRAMADOL
     Indication: NEURALGIA
     Route: 048
  8. LYRICA [Suspect]
     Active Substance: PREGABALIN
     Indication: NEURALGIA
     Route: 048

REACTIONS (4)
  - Metastases to lymph nodes [Unknown]
  - Colon cancer [Recovering/Resolving]
  - Ileus [Recovering/Resolving]
  - Constipation [Recovering/Resolving]
